FAERS Safety Report 8035889-0 (Version None)
Quarter: 2012Q1

REPORT INFORMATION
  Report Type: 
  Country: None (occurrence: None)
  Receive Date: 20120111
  Receipt Date: 20120111
  Transmission Date: 20120608
  Serious: Yes (Other)
  Sender: FDA-Public Use
  Company Number: None

PATIENT
  Sex: Male
  Weight: 92.986 kg

DRUGS (2)
  1. LOVASTATIN [Suspect]
     Indication: BLOOD CHOLESTEROL
     Dosage: 1 TABLET
     Route: 048
  2. GLIPIZIDE [Concomitant]
     Route: 048

REACTIONS (2)
  - MUSCLE TIGHTNESS [None]
  - BLOOD POTASSIUM DECREASED [None]
